FAERS Safety Report 19457659 (Version 1)
Quarter: 2021Q2

REPORT INFORMATION
  Report Type: Other
  Country: ID (occurrence: ID)
  Receive Date: 20210624
  Receipt Date: 20210624
  Transmission Date: 20210717
  Serious: Yes (Other)
  Sender: FDA-Public Use
  Company Number: ID-ROCHE-2853112

PATIENT
  Age: 5 Year
  Sex: Male

DRUGS (1)
  1. BEVACIZUMAB. [Suspect]
     Active Substance: BEVACIZUMAB
     Indication: APHAKIA
     Route: 050

REACTIONS (3)
  - Posterior capsule opacification [Unknown]
  - Cataract [Unknown]
  - Off label use [Unknown]
